FAERS Safety Report 7551703-1 (Version None)
Quarter: 2011Q2

REPORT INFORMATION
  Report Type: 
  Country: None (occurrence: None)
  Receive Date: 20110616
  Receipt Date: 20110608
  Transmission Date: 20111010
  Serious: Yes (Hospitalization, Other)
  Sender: FDA-Public Use
  Company Number: US-BAXTER-2011BH019681

PATIENT

DRUGS (6)
  1. DOXORUBICIN HCL [Suspect]
     Indication: BREAST CANCER
     Route: 042
  2. BEVACIZUMAB [Suspect]
     Route: 042
  3. CYCLOPHOSPHAMIDE [Suspect]
     Indication: BREAST CANCER
     Route: 042
  4. PACLITAXEL [Suspect]
     Indication: BREAST CANCER
     Route: 042
  5. PEGFILGRASTIM [Concomitant]
     Indication: PROPHYLAXIS
     Route: 058
  6. BEVACIZUMAB [Suspect]
     Indication: BREAST CANCER
     Route: 042

REACTIONS (1)
  - CHEST PAIN [None]
